FAERS Safety Report 4684512-1 (Version None)
Quarter: 2005Q2

REPORT INFORMATION
  Report Type: 
  Country: None (occurrence: None)
  Receive Date: 20050603
  Receipt Date: 20050520
  Transmission Date: 20051028
  Serious: Yes (Hospitalization, Other)
  Sender: FDA-Public Use
  Company Number: USA-2003-0009420

PATIENT
  Age: 52 Year
  Sex: Female

DRUGS (3)
  1. OXYCONTIN [Suspect]
     Indication: PAIN
     Dosage: MG
     Dates: start: 19990101, end: 20010101
  2. BENZODIAZEPINE() [Suspect]
  3. ALCOHOL (ETHANOL) [Suspect]

REACTIONS (14)
  - ALCOHOL POISONING [None]
  - AMNESIA [None]
  - DEPRESSION [None]
  - DRUG ABUSER [None]
  - DRUG DEPENDENCE [None]
  - DRUG WITHDRAWAL SYNDROME [None]
  - HYPOKALAEMIA [None]
  - IRRITABILITY [None]
  - LACERATION [None]
  - NERVOUSNESS [None]
  - OVERDOSE [None]
  - POLYSUBSTANCE ABUSE [None]
  - SUICIDE ATTEMPT [None]
  - WEIGHT DECREASED [None]
